FAERS Safety Report 21613900 (Version 1)
Quarter: 2022Q4

REPORT INFORMATION
  Report Type: Spontaneous
  Country: US (occurrence: US)
  Receive Date: 20221118
  Receipt Date: 20221118
  Transmission Date: 20230112
  Serious: Yes (Hospitalization, Other)
  Sender: FDA-Public Use
  Company Number: US-Axellia-004489

PATIENT
  Age: 65 Year
  Sex: Male

DRUGS (2)
  1. DAPTOMYCIN [Interacting]
     Active Substance: DAPTOMYCIN
     Indication: Staphylococcal osteomyelitis
     Dosage: 6 MG/KG
  2. ATORVASTATIN [Interacting]
     Active Substance: ATORVASTATIN
     Indication: Product used for unknown indication

REACTIONS (5)
  - Rhabdomyolysis [Recovering/Resolving]
  - Acute kidney injury [Recovered/Resolved]
  - Hyperkalaemia [Recovered/Resolved]
  - Drug interaction [Unknown]
  - Atrial fibrillation [Recovered/Resolved]
